FAERS Safety Report 4768264-2 (Version None)
Quarter: 2005Q3

REPORT INFORMATION
  Report Type: 
  Country: None (occurrence: None)
  Receive Date: 20050914
  Receipt Date: 20050902
  Transmission Date: 20060218
  Serious: Yes (Hospitalization)
  Sender: FDA-Public Use
  Company Number: FR-BRISTOL-MYERS SQUIBB COMPANY-13098348

PATIENT
  Age: 59 Year
  Sex: Male

DRUGS (5)
  1. VINFLUNINE IV [Suspect]
     Indication: NON-SMALL CELL LUNG CANCER
     Route: 042
     Dates: start: 20030728, end: 20040728
  2. CARBOPLATIN [Suspect]
     Indication: NON-SMALL CELL LUNG CANCER
     Route: 042
     Dates: start: 20030728, end: 20030728
  3. MORPHINE SULFATE [Concomitant]
     Indication: PAIN
     Dates: start: 20030601
  4. METOCLOPRAMIDE [Concomitant]
     Indication: NAUSEA
     Dates: start: 20030601
  5. SODIUM PICOSULFATE [Concomitant]
     Indication: CONSTIPATION
     Dates: start: 20030601

REACTIONS (5)
  - ANOREXIA [None]
  - ASTHENIA [None]
  - NAUSEA [None]
  - VOMITING [None]
  - WEIGHT DECREASED [None]
